FAERS Safety Report 13567152 (Version 1)
Quarter: 2017Q2

REPORT INFORMATION
  Report Type: Spontaneous
  Country: US (occurrence: US)
  Receive Date: 20170522
  Receipt Date: 20170522
  Transmission Date: 20170830
  Serious: No
  Sender: FDA-Public Use
  Company Number: US-TEVA-743892ACC

PATIENT
  Sex: Male

DRUGS (1)
  1. CLONIDINE. [Suspect]
     Active Substance: CLONIDINE
     Dosage: FORM OF ADMINISTRATION: PATCH

REACTIONS (4)
  - Hypertension [Unknown]
  - Product adhesion issue [Unknown]
  - Administration site erythema [Unknown]
  - Administration site urticaria [Unknown]
